FAERS Safety Report 22279832 (Version 1)
Quarter: 2023Q2

REPORT INFORMATION
  Report Type: Spontaneous
  Country: US (occurrence: US)
  Receive Date: 20230503
  Receipt Date: 20230503
  Transmission Date: 20230721
  Serious: No
  Sender: FDA-Public Use
  Company Number: US-ABBVIE-4732988

PATIENT

DRUGS (1)
  1. RINVOQ [Suspect]
     Active Substance: UPADACITINIB
     Indication: Product used for unknown indication
     Dosage: FORM STRENGTH- 45 MILLIGRAM
     Route: 048

REACTIONS (4)
  - Symptom recurrence [Unknown]
  - Product solubility abnormal [Not Recovered/Not Resolved]
  - Off label use [Unknown]
  - Product residue present [Unknown]
